FAERS Safety Report 9635900 (Version 1)
Quarter: 2013Q4

REPORT INFORMATION
  Report Type: Spontaneous
  Country: AU (occurrence: US)
  Receive Date: 20131021
  Receipt Date: 20131021
  Transmission Date: 20140711
  Serious: No
  Sender: FDA-Public Use
  Company Number: AU-PURDUE-USA-2013-0104107

PATIENT
  Sex: Male

DRUGS (1)
  1. NORSPAN [Suspect]
     Indication: ARTHRALGIA
     Dosage: 10 MCG/HR, WEEKLY
     Route: 048

REACTIONS (2)
  - Application site erythema [Unknown]
  - Application site pruritus [Unknown]
